FAERS Safety Report 12653503 (Version 3)
Quarter: 2016Q3

REPORT INFORMATION
  Report Type: Spontaneous
  Country: FR (occurrence: FR)
  Receive Date: 20160815
  Receipt Date: 20160823
  Transmission Date: 20161109
  Serious: Yes (Hospitalization)
  Sender: FDA-Public Use
  Company Number: FR-009507513-1608FRA007462

PATIENT
  Sex: Female

DRUGS (3)
  1. FOSAMAX [Suspect]
     Active Substance: ALENDRONATE SODIUM
     Indication: OSTEOPOROSIS
     Dosage: 1 TABLET/WEEK (EACH MONDAY)
     Route: 048
     Dates: start: 201509, end: 20160711
  2. UVEDOSE [Concomitant]
     Active Substance: CHOLECALCIFEROL
     Dosage: 1 DF, EVERY 3 MONTHS
     Dates: start: 201509, end: 20160711
  3. MOPRAL (OMEPRAZOLE) [Concomitant]
     Active Substance: OMEPRAZOLE SODIUM
     Dosage: UNK
     Dates: end: 20160711

REACTIONS (8)
  - Blood test abnormal [Unknown]
  - Dyspnoea [Unknown]
  - Pain [Unknown]
  - Jaundice [Unknown]
  - Hypoaesthesia [Unknown]
  - Abdominal distension [Recovered/Resolved]
  - Temporal arteritis [Recovering/Resolving]
  - Muscular weakness [Unknown]
